FAERS Safety Report 16362928 (Version 1)
Quarter: 2019Q2

REPORT INFORMATION
  Report Type: Spontaneous
  Country: RU (occurrence: RU)
  Receive Date: 20190528
  Receipt Date: 20190528
  Transmission Date: 20190711
  Serious: Yes (Other)
  Sender: FDA-Public Use
  Company Number: RU-009507513-1905RUS003411

PATIENT
  Age: 4 Year

DRUGS (1)
  1. NASONEX [Suspect]
     Active Substance: MOMETASONE FUROATE
     Indication: ADENOIDAL DISORDER
     Dosage: 1 DOSAGE (DOSE), ONCE A DAY (DURING 3 WEEKS)

REACTIONS (3)
  - Off label use [Unknown]
  - Upper respiratory fungal infection [Unknown]
  - Adenoidal disorder [Unknown]
